FAERS Safety Report 9295266 (Version 1)
Quarter: 2013Q1

REPORT INFORMATION
  Report Type: Spontaneous
  Country: US (occurrence: None)
  Receive Date: 20121227
  Receipt Date: 20121227
  Transmission Date: 20140127
  Serious: Yes (Hospitalization)
  Sender: FDA-Public Use
  Company Number: PHEH2011US009683

PATIENT
  Sex: Female
  Weight: 52.16 kg

DRUGS (1)
  1. EXJADE [Suspect]
     Indication: SICKLE CELL ANAEMIA
     Route: 048
     Dates: start: 20121001

REACTIONS (2)
  - Sickle cell anaemia with crisis [None]
  - Pain [None]
